APPROVED DRUG PRODUCT: EPINEPHRINE
Active Ingredient: EPINEPHRINE
Strength: 30MG/30ML (1MG/ML)
Dosage Form/Route: SOLUTION;INTRAMUSCULAR, INTRAVENOUS, SUBCUTANEOUS
Application: N215425 | Product #001
Applicant: FRESENIUS KABI USA LLC
Approved: Mar 13, 2025 | RLD: Yes | RS: Yes | Type: RX

PATENTS:
Patent 12539283 | Expires: Jan 17, 2045